FAERS Safety Report 18218052 (Version 2)
Quarter: 2020Q3

REPORT INFORMATION
  Report Type: Report from Study
  Country: US (occurrence: US)
  Receive Date: 20200901
  Receipt Date: 20200904
  Transmission Date: 20201103
  Serious: Yes (Life-Threatening, Hospitalization, Other)
  Sender: FDA-Public Use
  Company Number: NVSC2020US208278

PATIENT
  Age: 11 Year
  Sex: Male
  Weight: 45.4 kg

DRUGS (11)
  1. ACYCLOVIR. [Concomitant]
     Active Substance: ACYCLOVIR
     Indication: PROPHYLAXIS
     Dosage: 332 MG, BID
     Route: 048
     Dates: start: 20200703, end: 20200801
  2. KEPPRA [Concomitant]
     Active Substance: LEVETIRACETAM
     Indication: SEIZURE PROPHYLAXIS
  3. GANCICLOVIR. [Concomitant]
     Active Substance: GANCICLOVIR
     Indication: PROPHYLAXIS
     Dosage: 230 MG, Q12H
     Route: 042
     Dates: start: 20200731, end: 20200810
  4. KYMRIAH [Suspect]
     Active Substance: TISAGENLECLEUCEL
     Indication: ACUTE LYMPHOCYTIC LEUKAEMIA RECURRENT
     Dosage: 1.5X 10E6 CART CELLS/KG
     Route: 042
     Dates: start: 20200702, end: 20200702
  5. PRILOSEC [Concomitant]
     Active Substance: OMEPRAZOLE MAGNESIUM
     Indication: GASTROINTESTINAL DISORDER
     Dosage: 20 MG, QD
     Route: 065
     Dates: start: 20200626
  6. ACYCLOVIR. [Concomitant]
     Active Substance: ACYCLOVIR
     Dosage: 332 MG, BID
     Route: 048
     Dates: start: 20200710, end: 20200729
  7. ALLOPURINOL. [Concomitant]
     Active Substance: ALLOPURINOL
     Indication: TUMOUR LYSIS SYNDROME
     Dosage: 300 MG, BID
     Route: 048
     Dates: start: 20200625, end: 20200716
  8. KEPPRA [Concomitant]
     Active Substance: LEVETIRACETAM
     Indication: IMMUNE THROMBOCYTOPENIA
     Dosage: 450 MG, BID
     Route: 048
     Dates: start: 20200626, end: 20200804
  9. VALGANCICLOVIR. [Concomitant]
     Active Substance: VALGANCICLOVIR
     Indication: PROPHYLAXIS
     Dosage: UNK
     Route: 065
     Dates: start: 20200811
  10. MICAFUNGIN. [Concomitant]
     Active Substance: MICAFUNGIN SODIUM
     Indication: PROPHYLAXIS
     Dosage: 140 MG
     Route: 041
     Dates: start: 20200712, end: 20200725
  11. FLUCONAZOLE. [Concomitant]
     Active Substance: FLUCONAZOLE
     Indication: PROPHYLAXIS
     Dosage: 220 MG
     Route: 041
     Dates: start: 20200626, end: 20200711

REACTIONS (31)
  - Hypoxia [Recovered/Resolved]
  - Pyrexia [Not Recovered/Not Resolved]
  - Hypophosphataemia [Recovered/Resolved]
  - Hypocalcaemia [Recovering/Resolving]
  - Rash macular [Not Recovered/Not Resolved]
  - Cytomegalovirus colitis [Recovering/Resolving]
  - Cytokine release syndrome [Recovering/Resolving]
  - Nausea [Recovering/Resolving]
  - Aspartate aminotransferase increased [Not Recovered/Not Resolved]
  - Stomatitis [Unknown]
  - Pyrexia [Recovering/Resolving]
  - Transaminases increased [Unknown]
  - Hypofibrinogenaemia [Not Recovered/Not Resolved]
  - Cytomegalovirus infection reactivation [Not Recovered/Not Resolved]
  - Oedema peripheral [Recovered/Resolved]
  - Hypoxia [Recovering/Resolving]
  - Pyrexia [Recovered/Resolved]
  - Sinus tachycardia [Recovered/Resolved]
  - Face oedema [Recovered/Resolved]
  - Alanine aminotransferase increased [Not Recovered/Not Resolved]
  - Rash [Recovering/Resolving]
  - Hyperbilirubinaemia [Recovered/Resolved]
  - International normalised ratio increased [Recovered/Resolved]
  - Blood alkaline phosphatase increased [Not Recovered/Not Resolved]
  - Hypoxia [Recovered/Resolved]
  - Activated partial thromboplastin time prolonged [Not Recovered/Not Resolved]
  - Tachypnoea [Unknown]
  - Vomiting [Recovering/Resolving]
  - Diarrhoea [Not Recovered/Not Resolved]
  - Hypoxia [Recovered/Resolved]
  - Gingivitis [Unknown]

NARRATIVE: CASE EVENT DATE: 20200630
